FAERS Safety Report 17386672 (Version 5)
Quarter: 2025Q1

REPORT INFORMATION
  Report Type: Spontaneous
  Country: CZ (occurrence: CZ)
  Receive Date: 20200206
  Receipt Date: 20250110
  Transmission Date: 20250409
  Serious: Yes (Death, Life-Threatening, Hospitalization, Other)
  Sender: MYLAN
  Company Number: CZ-ROCHE-2483173

PATIENT
  Age: 3 Month
  Sex: Male

DRUGS (8)
  1. CYCLOSPORINE [Suspect]
     Active Substance: CYCLOSPORINE
     Indication: Prophylaxis against transplant rejection
     Route: 065
  2. MYCOPHENOLATE MOFETIL [Suspect]
     Active Substance: MYCOPHENOLATE MOFETIL
     Indication: Prophylaxis against transplant rejection
     Route: 065
  3. MYCOPHENOLATE MOFETIL [Suspect]
     Active Substance: MYCOPHENOLATE MOFETIL
     Indication: Prophylaxis against transplant rejection
  4. GANCICLOVIR [Suspect]
     Active Substance: GANCICLOVIR
     Indication: Cytomegalovirus infection
     Route: 065
  5. GANCICLOVIR [Suspect]
     Active Substance: GANCICLOVIR
     Route: 065
  6. ALEMTUZUMAB [Suspect]
     Active Substance: ALEMTUZUMAB
     Indication: Immunodeficiency
     Route: 065
  7. BUSULFAN [Suspect]
     Active Substance: BUSULFAN
     Indication: Autologous haematopoietic stem cell transplant
     Route: 065
  8. FLUDARABINE [Suspect]
     Active Substance: FLUDARABINE PHOSPHATE
     Indication: Immunodeficiency
     Route: 065

REACTIONS (16)
  - Septic shock [Fatal]
  - Sepsis [Fatal]
  - Scrotal abscess [Fatal]
  - Failure to thrive [Fatal]
  - Malnutrition [Fatal]
  - Neutropenia [Fatal]
  - Upper respiratory tract infection [Fatal]
  - Cytomegalovirus infection reactivation [Fatal]
  - Vomiting [Fatal]
  - Off label use [Fatal]
  - Multiple organ dysfunction syndrome [Fatal]
  - Abdominal pain [Fatal]
  - Mucosal inflammation [Fatal]
  - Dysphagia [Fatal]
  - Streptococcal sepsis [Fatal]
  - Febrile neutropenia [Unknown]
